FAERS Safety Report 9285667 (Version 3)
Quarter: 2014Q2

REPORT INFORMATION
  Report Type: Spontaneous
  Country: US (occurrence: US)
  Receive Date: 20130513
  Receipt Date: 20140422
  Transmission Date: 20141212
  Serious: Yes (Death, Hospitalization, Other)
  Sender: FDA-Public Use
  Company Number: US-JNJFOC-20130505069

PATIENT
  Age: 57 Year
  Sex: Male
  Weight: 108.86 kg

DRUGS (8)
  1. EXTRA STRENGTH TYLENOL [Suspect]
     Route: 048
  2. EXTRA STRENGTH TYLENOL [Suspect]
     Indication: PAIN
     Route: 048
  3. NEXIUM [Suspect]
     Indication: GASTROOESOPHAGEAL REFLUX DISEASE
     Route: 065
  4. EFFEXOR [Suspect]
     Indication: POST-TRAUMATIC STRESS DISORDER
     Route: 065
  5. SODIUM VALPROATE [Concomitant]
     Indication: EPILEPSY
     Route: 065
  6. RECTINOL [Concomitant]
     Indication: HAEMORRHOIDS
     Route: 065
  7. CLEXANE [Concomitant]
     Indication: THROMBOSIS
     Route: 065
  8. LACTULOSE [Concomitant]
     Indication: CONSTIPATION
     Route: 065

REACTIONS (7)
  - Acute hepatic failure [Fatal]
  - Injury [Unknown]
  - Cardio-respiratory arrest [Fatal]
  - Respiratory failure [Fatal]
  - Hepatic failure [Fatal]
  - Coma hepatic [Fatal]
  - Toxicity to various agents [Fatal]
